FAERS Safety Report 23609569 (Version 1)
Quarter: 2024Q1

REPORT INFORMATION
  Report Type: Spontaneous
  Country: GB (occurrence: GB)
  Receive Date: 20240308
  Receipt Date: 20240308
  Transmission Date: 20240410
  Serious: Yes (Disabling)
  Sender: FDA-Public Use
  Company Number: None

PATIENT
  Age: 74 Year
  Sex: Female
  Weight: 57 kg

DRUGS (19)
  1. LEVOFLOXACIN [Suspect]
     Active Substance: LEVOFLOXACIN
     Route: 065
  2. NEFOPAM [Concomitant]
     Active Substance: NEFOPAM
     Dosage: TIME INTERVAL: 0.33333333 DAYS: TAKE ONE OR TWO THREE TIMES A DAY WHEN REQUIRED...
     Dates: start: 20230802
  3. CHOLESTYRAMINE [Concomitant]
     Active Substance: CHOLESTYRAMINE
     Dosage: TAKE ONE DAILY AT MIDDAY
     Dates: start: 20230802
  4. SENNA [Concomitant]
     Active Substance: SENNA LEAF\SENNOSIDES\SENNOSIDES A AND B
     Indication: Constipation
     Dosage: TAKE ONE AT NIGHT WHEN REQUIRED FOR CONSTIPATION
     Dates: start: 20230802
  5. ACETAMINOPHEN [Concomitant]
     Active Substance: ACETAMINOPHEN
     Dosage: TAKE TWO UP TO FOUR TIMES A DAY AS NEEDED FOR P...
     Dates: start: 20230802
  6. ALBUTEROL [Concomitant]
     Active Substance: ALBUTEROL
     Dosage: TIME INTERVAL: AS NECESSARY: INHALE TWO PUFFS AS NEEDED
     Dates: start: 20230802
  7. LUFORBEC [Concomitant]
     Dosage: INHALE TWO PUFFS TWICE DAILY, PLUS UP TO AN ADD...
     Dates: start: 20230802
  8. WARFARIN SODIUM [Concomitant]
     Active Substance: WARFARIN SODIUM
     Dosage: TAKE AS DIRECTED ACCORDING TO INR
     Dates: start: 20230802
  9. POLYETHYLENE GLYCOL 3350\POTASSIUM CHLORIDE\SODIUM BICARBONATE\SODIUM [Concomitant]
     Active Substance: POLYETHYLENE GLYCOL 3350\POTASSIUM CHLORIDE\SODIUM BICARBONATE\SODIUM CHLORIDE
     Dosage: TAKE ONE OR TWO SACHETS TWICE A DAY WHEN REQUIR...
     Dates: start: 20230802
  10. SIMETHICONE (DIMETHICONE) [Concomitant]
     Active Substance: DIMETHICONE
     Dosage: TIME INTERVAL: 0.33333333 DAYS: TAKE ONE THREE TIMES A DAY (1 HOUR AFTER MEALS)
     Dates: start: 20230802
  11. UNSPECIFIED INGREDIENT [Concomitant]
     Active Substance: UNSPECIFIED INGREDIENT
     Dosage: APPLY TO LEGS FOUR TIMES A DAY (SAME AS DOUBLEB...
     Dates: start: 20230802
  12. UNSPECIFIED INGREDIENT [Concomitant]
     Active Substance: UNSPECIFIED INGREDIENT
     Dosage: APPLY IN THE MORNING (CONOTRANE UNAVAILABLE)
     Dates: start: 20230802
  13. ATORVASTATIN [Concomitant]
     Active Substance: ATORVASTATIN
     Dosage: TAKE ONE AT NIGHT
     Dates: start: 20230802
  14. MEBEVERINE HYDROCHLORIDE [Concomitant]
     Active Substance: MEBEVERINE HYDROCHLORIDE
     Dosage: TIME INTERVAL: 0.33333333 DAYS: TAKE ONE THREE TIMES A DAY BEFORE MEALS
     Dates: start: 20230802
  15. SPIRIVA [Concomitant]
     Active Substance: TIOTROPIUM BROMIDE MONOHYDRATE
     Dosage: INHALE TWO PUFFS ONCE DAILY (REPLACE DEVICE EVE...
     Dates: start: 20230802
  16. MORPHINE SULFATE [Concomitant]
     Active Substance: MORPHINE SULFATE
     Dosage: TAKE ONE IN MORNING AND TWO AT NIGHT (12 HOURS ...
     Dates: start: 20240223
  17. ESOMEPRAZOLE [Concomitant]
     Active Substance: ESOMEPRAZOLE
     Dosage: TAKE ONE DAILY (BETWEEN EVENING MEAL AND BEDTIME)
     Dates: start: 20230802
  18. AMITRIPTYLINE HYDROCHLORIDE [Concomitant]
     Active Substance: AMITRIPTYLINE HYDROCHLORIDE
     Dosage: TAKE FOUR AT NIGHT FOR 2 WEEKS, THEN IF NO SIDE...
     Dates: start: 20230802
  19. BUTYLSCOPOLAMINE BROMIDE [Concomitant]
     Active Substance: BUTYLSCOPOLAMINE BROMIDE
     Dosage: TIME INTERVAL: AS NECESSARY: TAKE ONE WHEN REQUIRED
     Dates: start: 20230802

REACTIONS (1)
  - Tendonitis [Not Recovered/Not Resolved]
